FAERS Safety Report 17840133 (Version 3)
Quarter: 2020Q3

REPORT INFORMATION
  Report Type: Report from Study
  Country: CA (occurrence: CA)
  Receive Date: 20200529
  Receipt Date: 20200708
  Transmission Date: 20201103
  Serious: Yes (Other)
  Sender: FDA-Public Use
  Company Number: CA-JNJFOC-20200322888

PATIENT
  Age: 60 Year
  Sex: Male
  Weight: 74.84 kg

DRUGS (2)
  1. REMICADE [Suspect]
     Active Substance: INFLIXIMAB
     Dosage: USED LAST INFUSION ON 16?APR?2020. THERAPY START DATE 600 MG 1 EVERY 5 WEEKS RECEIVED ON 21/MAY/2020
     Route: 042
     Dates: start: 202005
  2. REMICADE [Suspect]
     Active Substance: INFLIXIMAB
     Indication: CROHN^S DISEASE
     Route: 042
     Dates: start: 20090430

REACTIONS (7)
  - Abdominal pain [Unknown]
  - Diarrhoea [Unknown]
  - Hypertension [Unknown]
  - Intestinal ulcer [Unknown]
  - Large intestinal stenosis [Unknown]
  - Gastrointestinal inflammation [Unknown]
  - Gastrointestinal carcinoma [Unknown]

NARRATIVE: CASE EVENT DATE: 20200519
